FAERS Safety Report 25479861 (Version 2)
Quarter: 2025Q3

REPORT INFORMATION
  Report Type: Spontaneous
  Country: US (occurrence: US)
  Receive Date: 20250625
  Receipt Date: 20250730
  Transmission Date: 20251020
  Serious: Yes (Hospitalization, Other)
  Sender: NOVO NORDISK
  Company Number: US-NOVOPROD-1461660

PATIENT
  Sex: Female

DRUGS (1)
  1. NOVOLOG MIX 70/30 [Suspect]
     Active Substance: INSULIN ASPART
     Indication: Product used for unknown indication
     Dosage: 70 IU, QD IN MORNING

REACTIONS (4)
  - Seizure [Unknown]
  - Parkinson^s disease [Unknown]
  - Thinking abnormal [Unknown]
  - Ill-defined disorder [Unknown]
